FAERS Safety Report 9540617 (Version 2)
Quarter: 2013Q3

REPORT INFORMATION
  Report Type: Spontaneous
  Country: ZA (occurrence: ZA)
  Receive Date: 20130920
  Receipt Date: 20130920
  Transmission Date: 20140515
  Serious: Yes (Hospitalization)
  Sender: FDA-Public Use
  Company Number: ZA-NOVOPROD-385960

PATIENT
  Age: 2 Day
  Sex: Female
  Weight: 4.2 kg

DRUGS (8)
  1. NOVORAPID FLEXPEN [Suspect]
     Indication: TYPE 2 DIABETES MELLITUS
     Dosage: 26 IU, TID
     Route: 064
     Dates: start: 20120929
  2. NOVORAPID FLEXPEN [Suspect]
     Indication: TYPE 2 DIABETES MELLITUS
     Dosage: 26 IU, TID
     Route: 064
     Dates: start: 20120929
  3. NOVORAPID FLEXPEN [Suspect]
     Dosage: 28 IU, TID
     Route: 064
  4. NOVORAPID FLEXPEN [Suspect]
     Dosage: 28 IU, TID
     Route: 064
  5. PROTAPHANE FLEXPEN [Suspect]
     Indication: TYPE 2 DIABETES MELLITUS
     Dosage: 42 IU, SINGLE
     Route: 064
     Dates: start: 20120926
  6. PROTAPHANE FLEXPEN [Suspect]
     Dosage: 30 U NIGHT
     Route: 064
  7. PROTAPHANE FLEXPEN [Suspect]
     Dosage: 36 U NIGHT
     Route: 064
  8. PREXUM [Concomitant]
     Indication: HYPERTENSION
     Dosage: UNK
     Route: 048

REACTIONS (2)
  - Hypoglycaemia neonatal [Recovered/Resolved]
  - Foetal exposure during pregnancy [Unknown]
